FAERS Safety Report 23573186 (Version 1)
Quarter: 2024Q1

REPORT INFORMATION
  Report Type: Spontaneous
  Country: FR (occurrence: FR)
  Receive Date: 20240228
  Receipt Date: 20240228
  Transmission Date: 20240410
  Serious: Yes (Other)
  Sender: FDA-Public Use
  Company Number: FR-BIOGARAN-B23002119

PATIENT
  Age: 24 Year
  Sex: Male
  Weight: 77 kg

DRUGS (3)
  1. ESCITALOPRAM [Suspect]
     Active Substance: ESCITALOPRAM OXALATE
     Indication: Mixed anxiety and depressive disorder
     Dosage: 10 MILLIGRAM
     Route: 048
     Dates: start: 20230707, end: 20230710
  2. SERTRALINE [Suspect]
     Active Substance: SERTRALINE HYDROCHLORIDE
     Indication: Mixed anxiety and depressive disorder
     Dosage: 25 MILLIGRAM
     Route: 048
     Dates: start: 20230627, end: 20230627
  3. LEVOCETIRIZINE [Concomitant]
     Active Substance: LEVOCETIRIZINE
     Indication: Hypersensitivity
     Dosage: 5 MILLIGRAM, ONCE A DAY
     Route: 048
     Dates: start: 202303

REACTIONS (3)
  - Erectile dysfunction [Recovered/Resolved]
  - Loss of libido [Recovered/Resolved]
  - Ejaculation failure [Recovered/Resolved]

NARRATIVE: CASE EVENT DATE: 20230627
